FAERS Safety Report 20062696 (Version 2)
Quarter: 2022Q1

REPORT INFORMATION
  Report Type: Spontaneous
  Country: US (occurrence: US)
  Receive Date: 20211112
  Receipt Date: 20220119
  Transmission Date: 20220423
  Serious: No
  Sender: FDA-Public Use
  Company Number: US-MYLANLABS-2021M1077462

PATIENT
  Sex: Male
  Weight: 67 kg

DRUGS (4)
  1. WIXELA INHUB [Suspect]
     Active Substance: FLUTICASONE PROPIONATE\SALMETEROL XINAFOATE
     Indication: Chronic obstructive pulmonary disease
     Dosage: 250/50 MICROGRAM, QD (WHEN NEEDED BID)
     Route: 055
     Dates: start: 2018
  2. WIXELA INHUB [Suspect]
     Active Substance: FLUTICASONE PROPIONATE\SALMETEROL XINAFOATE
     Dosage: 250/50 MICROGRAM, (1-2 TIMES A DAY)
     Route: 055
     Dates: start: 20211230
  3. ALBUTEROL [Concomitant]
     Active Substance: ALBUTEROL
     Dosage: UNK
  4. MIACALCIN [Concomitant]
     Active Substance: CALCITONIN SALMON
     Dosage: UNK

REACTIONS (2)
  - Device mechanical issue [Not Recovered/Not Resolved]
  - Off label use [Not Recovered/Not Resolved]
